FAERS Safety Report 8110207-8 (Version None)
Quarter: 2012Q1

REPORT INFORMATION
  Report Type: 
  Country: None (occurrence: None)
  Receive Date: 20120202
  Receipt Date: 20120126
  Transmission Date: 20120608
  Serious: No
  Sender: FDA-Public Use
  Company Number: US-AMGEN-USASP2012005560

PATIENT
  Age: 72 Year
  Sex: Female

DRUGS (3)
  1. PLAQUENIL [Concomitant]
     Dosage: 1 MG, QD
     Dates: start: 20040101
  2. TREXALL [Concomitant]
     Dosage: 1 MG, QWK
     Dates: start: 20040101
  3. ENBREL [Suspect]
     Indication: RHEUMATOID ARTHRITIS
     Dosage: 50 MG, QWK
     Dates: start: 20050209, end: 20111221

REACTIONS (4)
  - UPPER RESPIRATORY TRACT INFECTION [None]
  - NIGHT SWEATS [None]
  - CELLULITIS [None]
  - MUSCULOSKELETAL PAIN [None]
